FAERS Safety Report 18322295 (Version 1)
Quarter: 2020Q3

REPORT INFORMATION
  Report Type: Spontaneous
  Country: IT (occurrence: IT)
  Receive Date: 20200928
  Receipt Date: 20200928
  Transmission Date: 20201103
  Serious: Yes (Other)
  Sender: FDA-Public Use
  Company Number: IT-009507513-2009ITA009901

PATIENT
  Age: 79 Year
  Sex: Male

DRUGS (4)
  1. CASPOFUNGIN ACETATE. [Suspect]
     Active Substance: CASPOFUNGIN ACETATE
     Indication: ANTIFUNGAL TREATMENT
     Dosage: ON DAY 37 (DAY 1) 70 MILLIGRAM
     Dates: start: 2020, end: 2020
  2. COLISTIN [Concomitant]
     Active Substance: COLISTIN
     Indication: ACINETOBACTER INFECTION
     Dosage: 2.25 MUI Q12H
     Dates: start: 2020
  3. CASPOFUNGIN ACETATE. [Suspect]
     Active Substance: CASPOFUNGIN ACETATE
     Dosage: 50 MG, Q24H
     Dates: start: 2020
  4. ERTAPENEM SODIUM [Concomitant]
     Active Substance: ERTAPENEM SODIUM
     Indication: MORGANELLA INFECTION
     Dosage: ON DAY 28, 1G, Q24H
     Dates: start: 2020, end: 2020

REACTIONS (1)
  - Pathogen resistance [Unknown]

NARRATIVE: CASE EVENT DATE: 2020
